FAERS Safety Report 6756928-0 (Version None)
Quarter: 2010Q2

REPORT INFORMATION
  Report Type: 
  Country: None (occurrence: None)
  Receive Date: 20100604
  Receipt Date: 20100525
  Transmission Date: 20101027
  Serious: Yes (Death, Other)
  Sender: FDA-Public Use
  Company Number: CZ-PFIZER INC-2010059088

PATIENT
  Age: 56 Year
  Sex: Female

DRUGS (8)
  1. DOXORUBICIN HCL [Suspect]
     Indication: NON-HODGKIN'S LYMPHOMA
  2. CYCLOPHOSPHAMIDE [Suspect]
     Indication: NON-HODGKIN'S LYMPHOMA
  3. VINCRISTINE [Suspect]
     Indication: NON-HODGKIN'S LYMPHOMA
  4. PREDNISONE [Suspect]
     Indication: NON-HODGKIN'S LYMPHOMA
  5. RITUXIMAB [Suspect]
     Indication: NON-HODGKIN'S LYMPHOMA
  6. CARBOPLATIN [Suspect]
     Indication: NON-HODGKIN'S LYMPHOMA
  7. IFOSFAMIDE [Suspect]
     Indication: NON-HODGKIN'S LYMPHOMA
  8. ETOPOSIDE [Suspect]
     Indication: NON-HODGKIN'S LYMPHOMA

REACTIONS (2)
  - HEPATITIS B [None]
  - HEPATITIS CHOLESTATIC [None]
